FAERS Safety Report 25986410 (Version 2)
Quarter: 2025Q4

REPORT INFORMATION
  Report Type: Spontaneous
  Country: US (occurrence: US)
  Receive Date: 20251102
  Receipt Date: 20251212
  Transmission Date: 20260117
  Serious: No
  Sender: GILEAD
  Company Number: US-GILEAD-2025-0734686

PATIENT
  Age: 33 Year
  Sex: Male

DRUGS (2)
  1. YEZTUGO [Suspect]
     Active Substance: LENACAPAVIR SODIUM
     Indication: Prophylaxis against HIV infection
     Dosage: UNK INJECTION IN ABDOMEN
     Route: 058
  2. YEZTUGO [Suspect]
     Active Substance: LENACAPAVIR SODIUM
     Indication: Prophylaxis against HIV infection
     Dosage: UNK TABLETS
     Route: 065

REACTIONS (2)
  - Injection site discharge [Unknown]
  - Injection site pain [Unknown]
